FAERS Safety Report 6917659-7 (Version None)
Quarter: 2010Q3

REPORT INFORMATION
  Report Type: 
  Country: None (occurrence: None)
  Receive Date: 20100810
  Receipt Date: 20090311
  Transmission Date: 20110219
  Serious: No
  Sender: FDA-Public Use
  Company Number: US-WYE-H08547409

PATIENT
  Sex: Male

DRUGS (1)
  1. PROTONIX [Suspect]
     Indication: GASTROINTESTINAL HAEMORRHAGE
     Dosage: UNKNOWN
     Route: 042
     Dates: start: 20090101

REACTIONS (1)
  - INFUSION SITE EXTRAVASATION [None]
